FAERS Safety Report 4755101-5 (Version None)
Quarter: 2005Q3

REPORT INFORMATION
  Report Type: 
  Country: None (occurrence: None)
  Receive Date: 20050825
  Receipt Date: 20050817
  Transmission Date: 20060218
  Serious: Yes (Hospitalization)
  Sender: FDA-Public Use
  Company Number: 200512576GDS

PATIENT
  Age: 72 Year
  Sex: Female
  Weight: 46 kg

DRUGS (6)
  1. AVELOX [Suspect]
     Indication: RESPIRATORY TRACT INFECTION
     Dosage: 400 MG, QD, ORAL
     Route: 048
     Dates: start: 20050601, end: 20050630
  2. NITROFURANTOIN [Suspect]
     Dosage: 300 MG, TOTAL DAILY, ORAL
     Route: 048
     Dates: start: 20050616, end: 20050629
  3. ZOLPIDEM [Concomitant]
  4. ASAFLOW [Concomitant]
  5. LIPITOR [Concomitant]
  6. ESTROGEL [Concomitant]

REACTIONS (2)
  - AGRANULOCYTOSIS [None]
  - RASH [None]
